FAERS Safety Report 11756681 (Version 2)
Quarter: 2015Q4

REPORT INFORMATION
  Report Type: Spontaneous
  Country: ES (occurrence: ES)
  Receive Date: 20151120
  Receipt Date: 20151211
  Transmission Date: 20160304
  Serious: Yes (Hospitalization)
  Sender: FDA-Public Use
  Company Number: ES-SUN PHARMACEUTICAL INDUSTRIES LTD-2015RR-106347

PATIENT

DRUGS (1)
  1. OXALIPLATIN. [Suspect]
     Active Substance: OXALIPLATIN
     Indication: SKIN TEST
     Dosage: 5 MG/ML
     Route: 023

REACTIONS (4)
  - Injection site extravasation [None]
  - Drug administration error [Recovered/Resolved]
  - Cellulitis gangrenous [Recovered/Resolved]
  - Incorrect route of drug administration [None]
